FAERS Safety Report 17356543 (Version 1)
Quarter: 2020Q1

REPORT INFORMATION
  Report Type: Other
  Country: US (occurrence: US)
  Receive Date: 20200131
  Receipt Date: 20200131
  Transmission Date: 20200409
  Serious: No
  Sender: FDA-Public Use
  Company Number: US-LEADIANT BIOSCIENCES INC-2019STPI000639

PATIENT

DRUGS (15)
  1. REVCOVI [Suspect]
     Active Substance: ELAPEGADEMASE-LVLR
     Indication: IMMUNODEFICIENCY
     Dosage: 9 MILLILITER EVERY TUESDAY AND THURSDAY
     Route: 030
     Dates: start: 20170624
  2. IRON [Concomitant]
     Active Substance: IRON
  3. ARMOUR THYROID [Concomitant]
     Active Substance: THYROID, PORCINE
  4. CALCIUM [Concomitant]
     Active Substance: CALCIUM
  5. HYDROXYZINE [Concomitant]
     Active Substance: HYDROXYZINE HYDROCHLORIDE
  6. VITAMIN C [Concomitant]
     Active Substance: ASCORBIC ACID
  7. PLAQUENIL [Concomitant]
     Active Substance: HYDROXYCHLOROQUINE SULFATE
  8. ACYCLOVIR [ACICLOVIR] [Concomitant]
     Active Substance: ACYCLOVIR
  9. XANAX [Concomitant]
     Active Substance: ALPRAZOLAM
  10. BENADRYL [Concomitant]
     Active Substance: DIPHENHYDRAMINE HYDROCHLORIDE
  11. LYSINE [Concomitant]
     Active Substance: LYSINE
  12. ALEVE [Concomitant]
     Active Substance: NAPROXEN SODIUM
  13. IODINE. [Concomitant]
     Active Substance: IODINE
  14. LEXAPRO [Concomitant]
     Active Substance: ESCITALOPRAM OXALATE
  15. LIDOCREAM [Concomitant]

REACTIONS (3)
  - Herpes zoster [Unknown]
  - Weight increased [Unknown]
  - Skin burning sensation [Not Recovered/Not Resolved]

NARRATIVE: CASE EVENT DATE: 2019
